FAERS Safety Report 23150218 (Version 2)
Quarter: 2023Q4

REPORT INFORMATION
  Report Type: Spontaneous
  Country: PK (occurrence: PK)
  Receive Date: 20231106
  Receipt Date: 20231128
  Transmission Date: 20240110
  Serious: Yes (Other)
  Sender: FDA-Public Use
  Company Number: PK-PFIZER INC-PV202300179212

PATIENT
  Age: 53 Year
  Sex: Male

DRUGS (5)
  1. IXIFI [Suspect]
     Active Substance: INFLIXIMAB-QBTX
     Indication: Ankylosing spondylitis
     Dosage: 5 MG/KG, EVERY 8 WEEKS
     Route: 042
     Dates: start: 2021
  2. ZEEGAP [Concomitant]
     Dosage: 50 MG, 2X/DAY (1-0-1)
  3. METHOTREXATE [Concomitant]
     Active Substance: METHOTREXATE
     Dosage: 2.5 MG, (2+2) 4 TABS
  4. OMEGA-3 FATTY ACIDS [Concomitant]
     Active Substance: OMEGA-3 FATTY ACIDS
     Dosage: 40 MG, 1X/DAY (1-0-0)
  5. ONITA [Concomitant]
     Dosage: 1 G, 1X/DAY (ONCE DAILY), SACHET

REACTIONS (2)
  - Spinal cord compression [Unknown]
  - Off label use [Unknown]
